FAERS Safety Report 6701404-4 (Version None)
Quarter: 2010Q2

REPORT INFORMATION
  Report Type: 
  Country: None (occurrence: None)
  Receive Date: 20100429
  Receipt Date: 20100303
  Transmission Date: 20101027
  Serious: No
  Sender: FDA-Public Use
  Company Number: 2009BI041120

PATIENT
  Age: 65 Year
  Sex: Female

DRUGS (2)
  1. TYSABRI [Suspect]
     Indication: MULTIPLE SCLEROSIS
     Route: 042
     Dates: start: 20050101, end: 20050101
  2. TYSABRI [Suspect]
     Route: 042
     Dates: start: 20070101

REACTIONS (5)
  - FATIGUE [None]
  - HEADACHE [None]
  - IMMUNE SYSTEM DISORDER [None]
  - NAUSEA [None]
  - VOMITING [None]
